FAERS Safety Report 8214347-4 (Version None)
Quarter: 2012Q1

REPORT INFORMATION
  Report Type: 
  Country: None (occurrence: None)
  Receive Date: 20120227
  Receipt Date: 20111122
  Transmission Date: 20120608
  Serious: No
  Sender: FDA-Public Use
  Company Number: 341475

PATIENT
  Age: 54 Year
  Sex: Male
  Weight: 103.4 kg

DRUGS (9)
  1. LANTUS [Concomitant]
  2. DIOVAN [Concomitant]
  3. AMARYL [Concomitant]
  4. VICTOZA [Suspect]
     Indication: TYPE 2 DIABETES MELLITUS
     Dosage: 1.8 MG, QD, SUBCUTANEOUS
     Route: 058
     Dates: start: 20110701, end: 20111101
  5. HYDROCHLOROTHIAZIDE [Concomitant]
  6. VITAMIN D [Concomitant]
  7. PRAVASTATIN [Concomitant]
  8. METFORMIN HCL [Concomitant]
  9. LOVAZA [Concomitant]

REACTIONS (1)
  - BLOOD TRIGLYCERIDES INCREASED [None]
